FAERS Safety Report 8267273-9 (Version None)
Quarter: 2012Q2

REPORT INFORMATION
  Report Type: 
  Country: None (occurrence: None)
  Receive Date: 20120409
  Receipt Date: 20120403
  Transmission Date: 20120825
  Serious: Yes (Hospitalization, Other)
  Sender: FDA-Public Use
  Company Number: UY-JNJFOC-20120109681

PATIENT
  Age: 45 Year
  Sex: Female

DRUGS (1)
  1. LEUSTATIN [Suspect]
     Indication: PRODUCT USED FOR UNKNOWN INDICATION
     Route: 065

REACTIONS (4)
  - RASH [None]
  - BLOOD CREATININE INCREASED [None]
  - TRANSAMINASES ABNORMAL [None]
  - HOSPITALISATION [None]
